FAERS Safety Report 8762851 (Version 2)
Quarter: 2012Q4

REPORT INFORMATION
  Report Type: 
  Country: GB (occurrence: GB)
  Receive Date: 20120830
  Receipt Date: 20121009
  Transmission Date: 20130627
  Serious: Yes (Hospitalization, Other)
  Sender: FDA-Public Use
  Company Number: GB-BRISTOL-MYERS SQUIBB COMPANY-16886178

PATIENT
  Age: 44 Year
  Sex: Female

DRUGS (4)
  1. PARACETAMOL [Concomitant]
  2. IBUPROFEN [Concomitant]
  3. SULFASALAZINE [Concomitant]
  4. KENALOG-40 INJ [Suspect]
     Indication: ARTHRITIS
     Dosage: 1DF:40mg/ml.20Jun2012,11Jul2012
     Route: 030
     Dates: start: 201111

REACTIONS (1)
  - Injection site abscess [Unknown]
